FAERS Safety Report 15051233 (Version 1)
Quarter: 2018Q3

REPORT INFORMATION
  Report Type: Spontaneous
  Country: US (occurrence: US)
  Receive Date: 20180622
  Receipt Date: 20180622
  Transmission Date: 20181010
  Serious: Yes (Other)
  Sender: FDA-Public Use
  Company Number: US-COLGATE PALMOLIVE COMPANY-20180601428

PATIENT

DRUGS (2)
  1. COLGATE SENSITIVE WHITENING FRESH MINT [Suspect]
     Active Substance: POTASSIUM NITRATE\SODIUM FLUORIDE
     Indication: DENTAL DISORDER PROPHYLAXIS
     Dosage: ? FILLED BRISTLES AND USED 2?3 TIMES A DAY
     Route: 048
     Dates: start: 201806, end: 20180617
  2. COLGATE TOTAL WHITENING [Suspect]
     Active Substance: SODIUM FLUORIDE\TRICLOSAN
     Indication: DENTAL DISORDER PROPHYLAXIS
     Dosage: ? FILLED BRISTLES AND USED 2?3 TIMES A DAY
     Route: 048

REACTIONS (6)
  - Skin cancer [Unknown]
  - Vomiting projectile [Recovered/Resolved]
  - Sensitivity of teeth [Recovered/Resolved]
  - Nausea [Recovered/Resolved]
  - Sensation of foreign body [Recovered/Resolved]
  - Dyspepsia [Recovered/Resolved]

NARRATIVE: CASE EVENT DATE: 201806
